FAERS Safety Report 8632597 (Version 2)
Quarter: 2012Q4

REPORT INFORMATION
  Report Type: 
  Country: US (occurrence: US)
  Receive Date: 20120625
  Receipt Date: 20120830
  Transmission Date: 20130627
  Serious: Yes (Other)
  Sender: FDA-Public Use
  Company Number: US-NOVOPROD-354027

PATIENT
  Age: 11 Year
  Sex: Female
  Weight: 37.8 kg

DRUGS (1)
  1. NORDITROPIN FLEXPRO 6.7 MG/ML [Suspect]
     Indication: GROWTH HORMONE DEFICIENCY
     Dosage: 1.6 mg, qd
     Route: 058
     Dates: start: 200704

REACTIONS (1)
  - Osteonecrosis [Not Recovered/Not Resolved]
